FAERS Safety Report 4681988-0 (Version None)
Quarter: 2005Q2

REPORT INFORMATION
  Report Type: 
  Country: None (occurrence: None)
  Receive Date: 20050526
  Receipt Date: 20050413
  Transmission Date: 20051028
  Serious: Yes (Other)
  Sender: FDA-Public Use
  Company Number: US-JNJFOC-20050303460

PATIENT
  Age: 42 Year
  Sex: Female

DRUGS (1)
  1. RISPERDAL [Suspect]
     Indication: SCHIZOAFFECTIVE DISORDER
     Dosage: 25 MG, 1 IN 2 WEEK, INTRA-MUSCULAR
     Route: 030
     Dates: start: 20041001

REACTIONS (4)
  - CHEST PAIN [None]
  - ELECTROCARDIOGRAM ST-T CHANGE [None]
  - HYPOAESTHESIA [None]
  - PARAESTHESIA [None]
